FAERS Safety Report 4862570-9 (Version None)
Quarter: 2005Q4

REPORT INFORMATION
  Report Type: 
  Country: None (occurrence: None)
  Receive Date: 20051221
  Receipt Date: 20051214
  Transmission Date: 20060501
  Serious: Yes (Hospitalization)
  Sender: FDA-Public Use
  Company Number: FR-GLAXOSMITHKLINE-B0404246A

PATIENT
  Age: 17 Year
  Sex: Male
  Weight: 51 kg

DRUGS (3)
  1. AUGMENTIN [Suspect]
     Indication: TOOTH ABSCESS
     Route: 048
     Dates: start: 20051104, end: 20051109
  2. BIOSTIM [Concomitant]
     Route: 048
     Dates: start: 20051001
  3. AMOXICILLIN [Concomitant]
     Indication: TOOTH EXTRACTION
     Dates: start: 20051025

REACTIONS (3)
  - ARTHRALGIA [None]
  - PETECHIAE [None]
  - VASCULAR PURPURA [None]
